FAERS Safety Report 8166853-9 (Version None)
Quarter: 2012Q1

REPORT INFORMATION
  Report Type: 
  Country: None (occurrence: None)
  Receive Date: 20120103
  Receipt Date: 20111020
  Transmission Date: 20120608
  Serious: No
  Sender: FDA-Public Use
  Company Number: AE-2011-002550

PATIENT
  Age: 63 Year
  Sex: Female
  Weight: 65.7716 kg

DRUGS (5)
  1. INCIVEK [Suspect]
     Dosage: 750 MG (750 MG, 1 IN 1 D), ORAL
     Route: 048
     Dates: start: 20111014
  2. RIBAVIRIN [Concomitant]
  3. LEVOTHYROXINE SODIUM [Concomitant]
  4. PEGASYS [Concomitant]
  5. LISINOPRIL [Concomitant]

REACTIONS (1)
  - DRUG DOSE OMISSION [None]
